FAERS Safety Report 21164114 (Version 1)
Quarter: 2022Q3

REPORT INFORMATION
  Report Type: Spontaneous
  Country: FR (occurrence: FR)
  Receive Date: 20220803
  Receipt Date: 20220803
  Transmission Date: 20221026
  Serious: Yes (Death, Hospitalization, Other)
  Sender: FDA-Public Use
  Company Number: None

PATIENT
  Age: 68 Year
  Sex: Male
  Weight: 96 kg

DRUGS (4)
  1. METHOTREXATE [Suspect]
     Active Substance: METHOTREXATE
     Indication: Angiocentric lymphoma
     Dosage: UNIT DOSE :6000 MG  , FREQUENCY TIME : 1 CYCLICAL , DURATION : 1 DAY
     Dates: start: 20220705, end: 20220705
  2. DEXAMETHASONE [Suspect]
     Active Substance: DEXAMETHASONE
     Indication: Angiocentric lymphoma
     Dosage: UNIT DOSE : 40 MG , FREQUENCY TIME : 1 DAY , DURATION : 3 DAY
     Dates: start: 20220705, end: 20220708
  3. GEMCITABINE HYDROCHLORIDE [Suspect]
     Active Substance: GEMCITABINE HYDROCHLORIDE
     Indication: Angiocentric lymphoma
     Dosage: GEMCITABINE (CHLORHYDRATE DE) ,UNIT DOSE : 2000 MG , FREQUENCY TIME : 1 CYCLICAL , DURATION : 1 DAY
     Dates: start: 20220705, end: 20220705
  4. ASPARAGINASE [Suspect]
     Active Substance: ASPARAGINASE
     Indication: Angiocentric lymphoma
     Dosage: 10,000 U POWDER FOR CONCENTRATE FOR SOLUTION FOR INFUSION ,UNIT DOSE : 12000 IU , FREQUENCY TIME : 2
     Dates: start: 20220707, end: 20220713

REACTIONS (2)
  - Pancreatitis acute [Fatal]
  - Haematochezia [Not Recovered/Not Resolved]

NARRATIVE: CASE EVENT DATE: 20220703
